FAERS Safety Report 19911978 (Version 1)
Quarter: 2021Q4

REPORT INFORMATION
  Report Type: Other
  Country: CA (occurrence: CA)
  Receive Date: 20211004
  Receipt Date: 20211004
  Transmission Date: 20220303
  Serious: Yes (Hospitalization, Other)
  Sender: FDA-Public Use
  Company Number: CA-APOTEX-2021AP043312

PATIENT
  Age: 52 Year

DRUGS (6)
  1. DULOXETINE [Interacting]
     Active Substance: DULOXETINE
     Indication: Sciatica
     Dosage: 60 MILLIGRAM, QD
     Route: 065
  2. DULOXETINE [Interacting]
     Active Substance: DULOXETINE
     Indication: Product used for unknown indication
     Dosage: 30 MILLIGRAM, QD
     Route: 065
  3. SYMBICORT [Interacting]
     Active Substance: BUDESONIDE\FORMOTEROL FUMARATE DIHYDRATE
     Indication: Asthma
     Dosage: UNK
  4. XYLOMETAZOLINE [Interacting]
     Active Substance: XYLOMETAZOLINE
     Indication: Nasal congestion
     Dosage: UNK
     Route: 065
  5. XYLOMETAZOLINE [Interacting]
     Active Substance: XYLOMETAZOLINE
     Indication: Product used for unknown indication
  6. ALBUTEROL [Concomitant]
     Active Substance: ALBUTEROL
     Indication: Asthma
     Dosage: UNK
     Route: 065

REACTIONS (10)
  - Cerebral artery stenosis [Recovered/Resolved]
  - Drug interaction [Recovered/Resolved]
  - Nasal mucosal disorder [Recovered/Resolved]
  - Nasal turbinate hypertrophy [Recovered/Resolved]
  - Rebound nasal congestion [Recovered/Resolved]
  - Reversible cerebral vasoconstriction syndrome [Recovered/Resolved]
  - Rhinorrhoea [Recovered/Resolved]
  - Subarachnoid haemorrhage [Recovered/Resolved]
  - Headache [Recovered/Resolved]
  - Hypertension [Recovered/Resolved]
